FAERS Safety Report 4311445-2 (Version None)
Quarter: 2004Q1

REPORT INFORMATION
  Report Type: 
  Country: None (occurrence: None)
  Receive Date: 20040303
  Receipt Date: 20040303
  Transmission Date: 20041129
  Serious: Yes (Hospitalization)
  Sender: FDA-Public Use
  Company Number: None

PATIENT
  Age: 65 Year
  Sex: Male
  Weight: 70 kg

DRUGS (34)
  1. CYTARABINE [Suspect]
     Indication: ACUTE LEUKAEMIA
     Dosage: 1.5 MG /M2 Q12HR X 4 DOSES
     Dates: start: 20030825
  2. DOLASETRON MESYLATE [Concomitant]
  3. AMPHETAMINE /DEXTROAMPHETAMINE [Concomitant]
  4. DOPAMINE HYDROCHLORIDE [Concomitant]
  5. NOREPINEPHRINE [Concomitant]
  6. FILTRASTIM [Concomitant]
  7. DEXAMETHASONE SODIUM PHOSPHATE [Concomitant]
  8. FLUDROCORTISONE ACETATE [Concomitant]
  9. PREDNISONE [Concomitant]
  10. DEXAMETHASONE SOD PHOSPHATE [Concomitant]
  11. FUROSEMIDE [Concomitant]
  12. CYTARABINE [Concomitant]
  13. LEVOFLOXACIN [Concomitant]
  14. PIPERACILLIN/TAZOBACTAM [Concomitant]
  15. TOBRAMYCIN SULFATE [Concomitant]
  16. VANCOMYCIN HYDROCHLORIDE [Concomitant]
  17. CALCIUM GLUCONATE [Concomitant]
  18. DEXTROSE [Concomitant]
  19. MAGNESIUM SULFATE [Concomitant]
  20. SODIUM CHLORIDE INJ [Concomitant]
  21. ERGOCALCIFEROL [Concomitant]
  22. PHYTONADIONE [Concomitant]
  23. ALLOPURINOL [Concomitant]
  24. CLORHEXIDINE GLUCONATE [Concomitant]
  25. ESOMEPRAZOLE [Concomitant]
  26. CALCIUM CARBONATE [Concomitant]
  27. MOUTWASH, BICARBONATE(MINT) [Concomitant]
  28. PANTOPRAZOLE [Concomitant]
  29. DOCUSATE SODIUM [Concomitant]
  30. ACETAMINOPHEN [Concomitant]
  31. MORPHINE SULFATE [Concomitant]
  32. FLUCONAZOLE [Concomitant]
  33. DIPHENHYDRAMINE HCL [Concomitant]
  34. DEXTROSE 5%/.45% NORMAL SALINE [Concomitant]

REACTIONS (5)
  - AGITATION [None]
  - DELIRIUM [None]
  - DISORIENTATION [None]
  - ENCEPHALOPATHY [None]
  - SEPSIS [None]
